FAERS Safety Report 12461574 (Version 1)
Quarter: 2016Q2

REPORT INFORMATION
  Report Type: Spontaneous
  Country: ES (occurrence: ES)
  Receive Date: 20160613
  Receipt Date: 20160613
  Transmission Date: 20160815
  Serious: Yes (Other)
  Sender: FDA-Public Use
  Company Number: ES-WATSON-2016-12401

PATIENT
  Age: 62 Year
  Sex: Female

DRUGS (3)
  1. CISPLATIN (UNKNOWN) [Suspect]
     Active Substance: CISPLATIN
     Indication: OVARIAN DYSGERMINOMA STAGE III
     Dosage: EVERY 21 DAYS CYCLICAL
     Route: 065
  2. BLEOMYCIN [Suspect]
     Active Substance: BLEOMYCIN SULFATE
     Indication: OVARIAN DYSGERMINOMA STAGE III
     Dosage: EVERY 21 DAYS CYCLICAL
     Route: 065
  3. ETOPOSIDE (UNKNOWN) [Suspect]
     Active Substance: ETOPOSIDE
     Indication: OVARIAN DYSGERMINOMA STAGE III
     Dosage: EVERY 21 DAYS CYCLICAL
     Route: 065

REACTIONS (1)
  - Febrile neutropenia [Unknown]
